FAERS Safety Report 22234843 (Version 1)
Quarter: 2023Q2

REPORT INFORMATION
  Report Type: Spontaneous
  Country: US (occurrence: None)
  Receive Date: 20230419
  Receipt Date: 20230419
  Transmission Date: 20230722
  Serious: Yes (Other)
  Sender: FDA-Public Use
  Company Number: None

PATIENT
  Age: 25 Year
  Sex: Female
  Weight: 49.5 kg

DRUGS (1)
  1. METHYLPHENIDATE [Suspect]
     Active Substance: METHYLPHENIDATE
     Indication: Blood antidiuretic hormone
     Dosage: OTHER QUANTITY : 1 TABLET(S);?FREQUENCY : TWICE A DAY;?
     Route: 048
     Dates: start: 20230412, end: 20230413

REACTIONS (13)
  - Product substitution issue [None]
  - Product odour abnormal [None]
  - Drug ineffective [None]
  - Irritability [None]
  - Anger [None]
  - Depressed mood [None]
  - Palpitations [None]
  - Feeling abnormal [None]
  - Tachyphrenia [None]
  - Withdrawal syndrome [None]
  - Crying [None]
  - Thinking abnormal [None]
  - Impaired work ability [None]

NARRATIVE: CASE EVENT DATE: 20230412
